FAERS Safety Report 8838828 (Version 1)
Quarter: 2012Q4

REPORT INFORMATION
  Report Type: 
  Country: IT (occurrence: IT)
  Receive Date: 20121014
  Receipt Date: 20121014
  Transmission Date: 20130627
  Serious: Yes (Hospitalization)
  Sender: FDA-Public Use
  Company Number: IT-TEVA-363619ISR

PATIENT
  Age: 50 Year
  Sex: Male

DRUGS (4)
  1. AMLODIPINA BESILATO [Suspect]
     Dates: start: 20120928, end: 20120928
  2. EFEXOR [Suspect]
     Dates: start: 20120928, end: 20120928
  3. XERISTAR [Suspect]
     Dates: start: 20120928, end: 20120928
  4. BIFRIL [Suspect]
     Dates: start: 20120928, end: 20120928

REACTIONS (1)
  - Toxicity to various agents [Unknown]
